FAERS Safety Report 6557732-9 (Version None)
Quarter: 2010Q1

REPORT INFORMATION
  Report Type: 
  Country: None (occurrence: None)
  Receive Date: 20100126
  Receipt Date: 20091204
  Transmission Date: 20100710
  Serious: Yes (Hospitalization)
  Sender: FDA-Public Use
  Company Number: LMI-2009-00351 (0)

PATIENT
  Age: 77 Year
  Sex: Male
  Weight: 88.5 kg

DRUGS (18)
  1. DEFINITY [Suspect]
     Indication: CORONARY ARTERY DISEASE
     Dosage: SEE IMAGE
     Route: 040
     Dates: start: 20091202, end: 20091202
  2. DEFINITY [Suspect]
     Indication: ECHOCARDIOGRAM
     Dosage: SEE IMAGE
     Route: 040
     Dates: start: 20091202, end: 20091202
  3. DEFINITY [Suspect]
     Indication: EJECTION FRACTION
     Dosage: SEE IMAGE
     Route: 040
     Dates: start: 20091202, end: 20091202
  4. DEFINITY [Suspect]
     Indication: CORONARY ARTERY DISEASE
     Dosage: SEE IMAGE
     Route: 040
     Dates: start: 20091202, end: 20091202
  5. DEFINITY [Suspect]
     Indication: ECHOCARDIOGRAM
     Dosage: SEE IMAGE
     Route: 040
     Dates: start: 20091202, end: 20091202
  6. DEFINITY [Suspect]
     Indication: EJECTION FRACTION
     Dosage: SEE IMAGE
     Route: 040
     Dates: start: 20091202, end: 20091202
  7. CARVEDILOL [Concomitant]
  8. CYMBALTA [Concomitant]
  9. GEMFIBROZIL [Concomitant]
  10. POTASSIUM CHLORIDE [Concomitant]
  11. FUROSEMIDE [Concomitant]
  12. NITROSTAT [Concomitant]
  13. PLAVIX [Concomitant]
  14. SIMVASTATIN [Concomitant]
  15. SPIRONOLACTONE [Concomitant]
  16. TYLENOL [Concomitant]
  17. WARFARIN SODIUM [Concomitant]
  18. FISH OIL (FISH OIL) [Concomitant]

REACTIONS (3)
  - ANGINA PECTORIS [None]
  - BACK PAIN [None]
  - DIZZINESS [None]
